FAERS Safety Report 7792746-2 (Version None)
Quarter: 2011Q4

REPORT INFORMATION
  Report Type: 
  Country: None (occurrence: None)
  Receive Date: 20111003
  Receipt Date: 20110926
  Transmission Date: 20120403
  Serious: Yes (Hospitalization)
  Sender: FDA-Public Use
  Company Number: US-ROXANE LABORATORIES, INC.-2011-RO-01364RO

PATIENT
  Sex: Male
  Weight: 81 kg

DRUGS (5)
  1. CORTICOSTEROID [Concomitant]
     Route: 042
  2. COLCHICINE [Concomitant]
  3. ANTIHISTAMINE [Concomitant]
  4. PREDNISONE [Suspect]
  5. KRYSTEXXA [Suspect]
     Indication: GOUT
     Dosage: 8 MG
     Route: 042
     Dates: start: 20110401, end: 20110818

REACTIONS (3)
  - HYPOTHYROIDISM [None]
  - BLOOD URIC ACID INCREASED [None]
  - DIABETES MELLITUS [None]
